FAERS Safety Report 16924991 (Version 1)
Quarter: 2019Q4

REPORT INFORMATION
  Report Type: Spontaneous
  Country: US (occurrence: US)
  Receive Date: 20191015
  Receipt Date: 20191015
  Transmission Date: 20200122
  Serious: No
  Sender: FDA-Public Use
  Company Number: None

PATIENT
  Age: 11 Year
  Sex: Female
  Weight: 49.5 kg

DRUGS (2)
  1. MASIMO SET [Suspect]
     Active Substance: DEVICE
  2. PRECEDEX [Suspect]
     Active Substance: DEXMEDETOMIDINE HYDROCHLORIDE

REACTIONS (3)
  - Device infusion issue [None]
  - Wrong technique in device usage process [None]
  - Bradycardia [None]

NARRATIVE: CASE EVENT DATE: 20191010
